FAERS Safety Report 6292638-4 (Version None)
Quarter: 2009Q3

REPORT INFORMATION
  Report Type: 
  Country: None (occurrence: None)
  Receive Date: 20090731
  Receipt Date: 20090722
  Transmission Date: 20100115
  Serious: Yes (Other)
  Sender: FDA-Public Use
  Company Number: US-ASTRAZENECA-2009SE05871

PATIENT
  Age: 87 Year
  Sex: Female

DRUGS (1)
  1. SEROQUEL [Suspect]
     Route: 048
     Dates: start: 20090721

REACTIONS (3)
  - CONSCIOUSNESS FLUCTUATING [None]
  - HYPOVENTILATION [None]
  - LOSS OF CONSCIOUSNESS [None]
